FAERS Safety Report 8106666-7 (Version None)
Quarter: 2011Q4

REPORT INFORMATION
  Report Type: 
  Country: None (occurrence: None)
  Receive Date: 20111222
  Receipt Date: 20110929
  Transmission Date: 20120403
  Serious: Yes (Hospitalization)
  Sender: FDA-Public Use
  Company Number: UTC-010701

PATIENT
  Age: 55 Year
  Sex: Female
  Weight: 67.7 kg

DRUGS (2)
  1. TYVASO [Suspect]
     Indication: COR PULMONALE CHRONIC
     Dosage: 18-54 MICROGRAMS (4 IN 1 D),INHALATION
     Route: 055
     Dates: start: 20110823
  2. REVATIO [Concomitant]

REACTIONS (3)
  - TREATMENT NONCOMPLIANCE [None]
  - PULMONARY HYPERTENSION [None]
  - CONDITION AGGRAVATED [None]
